FAERS Safety Report 4803001-4 (Version None)
Quarter: 2005Q4

REPORT INFORMATION
  Report Type: 
  Country: None (occurrence: None)
  Receive Date: 20051013
  Receipt Date: 20050928
  Transmission Date: 20060501
  Serious: Yes (Hospitalization)
  Sender: FDA-Public Use
  Company Number: GBS050918583

PATIENT
  Age: 35 Year
  Sex: Male

DRUGS (4)
  1. HUMALOG [Suspect]
     Indication: DIABETES MELLITUS INSULIN-DEPENDENT
     Dates: start: 20050922, end: 20050923
  2. INSULIN GLARGINE [Concomitant]
  3. ACTRAPID (INSULIN HUMAN) [Concomitant]
  4. INSULATARD NPH HUMAN [Concomitant]

REACTIONS (6)
  - DYSPNOEA [None]
  - HYPERHIDROSIS [None]
  - HYPERSENSITIVITY [None]
  - HYPERTENSION [None]
  - HYPERVENTILATION [None]
  - MALAISE [None]
